FAERS Safety Report 6530596-5 (Version None)
Quarter: 2010Q1

REPORT INFORMATION
  Report Type: 
  Country: None (occurrence: None)
  Receive Date: 20100108
  Receipt Date: 20091230
  Transmission Date: 20100710
  Serious: Yes (Other)
  Sender: FDA-Public Use
  Company Number: GB-RANBAXY-2009RR-30240

PATIENT
  Age: 25 Year
  Sex: Female

DRUGS (2)
  1. SERTRALINE HCL [Suspect]
     Dosage: 50 MG, QD
     Dates: start: 20070301, end: 20080401
  2. SERTRALINE HCL [Suspect]
     Dosage: 50 MG, UNK
     Dates: end: 20090501

REACTIONS (1)
  - PSORIASIS [None]
